FAERS Safety Report 19179378 (Version 10)
Quarter: 2021Q3

REPORT INFORMATION
  Report Type: Report from Study
  Country: US (occurrence: US)
  Receive Date: 20210426
  Receipt Date: 20210804
  Transmission Date: 20211014
  Serious: Yes (Death, Hospitalization, Other)
  Sender: FDA-Public Use
  Company Number: US-GLAXOSMITHKLINE-US2021GSK058310

PATIENT
  Age: 58 Year
  Sex: Female
  Weight: 86.7 kg

DRUGS (16)
  1. ELIQUIS [Concomitant]
     Active Substance: APIXABAN
     Dosage: 5 MG, BID
     Route: 048
     Dates: start: 20210223
  2. NYSTATIN. [Concomitant]
     Active Substance: NYSTATIN
     Indication: ORAL CANDIDIASIS
     Dosage: 500000 IU, QID
     Route: 048
     Dates: start: 20210304, end: 20210307
  3. MAXIPIME (CEFEPIME) [Concomitant]
     Indication: INFECTION
     Dosage: UNK
     Route: 042
     Dates: start: 20210331, end: 20210407
  4. CARBOPLATIN (NON?GSK COMPARATOR) [Suspect]
     Active Substance: CARBOPLATIN
     Dosage: 382 AUC
     Route: 042
     Dates: start: 20210128, end: 20210128
  5. VANCOMYCIN [Concomitant]
     Active Substance: VANCOMYCIN
     Indication: INFECTION
     Dosage: UNK
     Route: 042
     Dates: start: 20210331, end: 20210407
  6. ELIQUIS [Concomitant]
     Active Substance: APIXABAN
     Indication: DEEP VEIN THROMBOSIS
     Dosage: 10 MG, BID
     Route: 048
     Dates: start: 20210216, end: 20210222
  7. METHYLPREDNISOLONE. [Concomitant]
     Active Substance: METHYLPREDNISOLONE
     Indication: IMMUNE SYSTEM DISORDER
     Dosage: 1 MG/KG
     Dates: start: 20210331
  8. DOSTARLIMAB [Suspect]
     Active Substance: DOSTARLIMAB
     Dosage: 1000 MG
     Dates: start: 20210218, end: 20210218
  9. VANCOMYCIN [Concomitant]
     Active Substance: VANCOMYCIN
     Indication: HYPOVOLAEMIC SHOCK
     Dosage: 1250 MG, ONCE
     Route: 042
     Dates: start: 20210304, end: 20210304
  10. LACTATED RINGERS SOLUTION [Concomitant]
     Active Substance: CALCIUM CHLORIDE\POTASSIUM CHLORIDE\SODIUM CHLORIDE\SODIUM LACTATE
     Indication: ACUTE KIDNEY INJURY
     Dosage: 1000 ML, ONCE
     Route: 042
     Dates: start: 20210304, end: 20210304
  11. DOSTARLIMAB [Suspect]
     Active Substance: DOSTARLIMAB
     Indication: ENDOMETRIAL CANCER
     Dosage: 500 MG
     Dates: start: 20201015, end: 20201015
  12. MAXIPIME (CEFEPIME) [Concomitant]
     Indication: HYPOVOLAEMIC SHOCK
     Dosage: 1000 MG, ONCE
     Route: 042
     Dates: start: 20210304, end: 20210304
  13. SODIUM CHLORIDE. [Concomitant]
     Active Substance: SODIUM CHLORIDE
     Indication: ACUTE KIDNEY INJURY
     Dosage: 1000 ML, PRN
     Route: 042
     Dates: start: 20210304, end: 20210305
  14. PACLITAXEL. [Suspect]
     Active Substance: PACLITAXEL
     Indication: ENDOMETRIAL CANCER
     Dosage: 175 MG/M2
     Route: 042
     Dates: start: 20201015, end: 20201015
  15. CARBOPLATIN (NON?GSK COMPARATOR) [Suspect]
     Active Substance: CARBOPLATIN
     Indication: ENDOMETRIAL CANCER
     Dosage: 5 AUC
     Route: 042
     Dates: start: 20201015, end: 20201015
  16. PACLITAXEL. [Suspect]
     Active Substance: PACLITAXEL
     Dosage: 175 MG/M2
     Route: 042
     Dates: start: 20210128, end: 20210128

REACTIONS (3)
  - Syncope [Recovered/Resolved]
  - Sudden death [Fatal]
  - Sepsis [Recovered/Resolved with Sequelae]

NARRATIVE: CASE EVENT DATE: 20210304
